FAERS Safety Report 24093101 (Version 1)
Quarter: 2024Q3

REPORT INFORMATION
  Report Type: Spontaneous
  Country: GB (occurrence: GB)
  Receive Date: 20240715
  Receipt Date: 20240715
  Transmission Date: 20241017
  Serious: Yes (Other)
  Sender: TEVA
  Company Number: GB-002147023-NVSC2024GB135507

PATIENT
  Sex: Female

DRUGS (3)
  1. FULVESTRANT [Suspect]
     Active Substance: FULVESTRANT
     Indication: Product used for unknown indication
     Dosage: 500 MG, Q4W (+C1D15)
     Route: 065
  2. FEMARA [Suspect]
     Active Substance: LETROZOLE
     Indication: Ovarian cancer
     Route: 065
  3. MEKINIST [Suspect]
     Active Substance: TRAMETINIB DIMETHYL SULFOXIDE
     Indication: Ovarian cancer
     Route: 065
     Dates: start: 202110, end: 202406

REACTIONS (3)
  - Ovarian cancer [Unknown]
  - Off label use [Unknown]
  - Malignant neoplasm progression [Unknown]
